FAERS Safety Report 23228008 (Version 3)
Quarter: 2024Q1

REPORT INFORMATION
  Report Type: Report from Study
  Country: US (occurrence: US)
  Receive Date: 20231125
  Receipt Date: 20240124
  Transmission Date: 20240410
  Serious: Yes (Hospitalization, Other)
  Sender: FDA-Public Use
  Company Number: US-002147023-NVSC2023US246763

PATIENT
  Age: 62 Year
  Sex: Female

DRUGS (1)
  1. ENTRESTO [Suspect]
     Active Substance: SACUBITRIL\VALSARTAN
     Indication: Product used for unknown indication
     Dosage: UNK
     Route: 065

REACTIONS (5)
  - Fluid retention [Unknown]
  - Diabetes mellitus [Unknown]
  - Pulmonary fibrosis [Unknown]
  - Cardiac disorder [Unknown]
  - Overweight [Unknown]

NARRATIVE: CASE EVENT DATE: 20231101
